FAERS Safety Report 5980231-X (Version None)
Quarter: 2008Q4

REPORT INFORMATION
  Report Type: 
  Country: None (occurrence: None)
  Receive Date: 20081202
  Receipt Date: 20081202
  Transmission Date: 20090506
  Serious: No
  Sender: FDA-Public Use
  Company Number: None

PATIENT
  Sex: Male
  Weight: 111.1313 kg

DRUGS (1)
  1. CHANTIX [Suspect]
     Indication: EX-TOBACCO USER
     Dosage: STANDARD
     Dates: start: 20080110, end: 20080410

REACTIONS (4)
  - ARTHRALGIA [None]
  - DEPRESSION [None]
  - FEELING ABNORMAL [None]
  - MUSCULOSKELETAL PAIN [None]
